FAERS Safety Report 5890714-9 (Version None)
Quarter: 2008Q3

REPORT INFORMATION
  Report Type: 
  Country: None (occurrence: None)
  Receive Date: 20080922
  Receipt Date: 20080912
  Transmission Date: 20090109
  Serious: Yes (Hospitalization)
  Sender: FDA-Public Use
  Company Number: GB-ROCHE-586137

PATIENT
  Sex: Female
  Weight: 87.1 kg

DRUGS (5)
  1. ORLISTAT [Suspect]
     Indication: OBESITY
     Route: 048
     Dates: start: 20080225, end: 20080825
  2. ACETAMINOPHEN W/ CODEINE [Concomitant]
     Dosage: 30/500MG DAILY AS REQUIRED
     Route: 048
  3. SERETIDE [Concomitant]
     Indication: ASTHMA
     Dosage: 2X250MG TWICE DAILY
     Route: 055
  4. VENTOLIN [Concomitant]
     Indication: ASTHMA
     Route: 055
  5. AMITRIPTYLINE HCL [Concomitant]
     Indication: SLEEP DISORDER
     Dosage: 2X25MG AS REQUIRED
     Route: 048

REACTIONS (1)
  - ANGINA PECTORIS [None]
